FAERS Safety Report 15711987 (Version 2)
Quarter: 2019Q1

REPORT INFORMATION
  Report Type: Spontaneous
  Country: DE (occurrence: DE)
  Receive Date: 20181212
  Receipt Date: 20190202
  Transmission Date: 20190417
  Serious: Yes (Hospitalization)
  Sender: FDA-Public Use
  Company Number: DE-DRREDDYS-GER/GER/18/0105991

PATIENT
  Sex: Female

DRUGS (6)
  1. PHENPROCOUMON [Suspect]
     Active Substance: PHENPROCOUMON
     Indication: ANTICOAGULANT THERAPY
     Route: 065
  2. TOCILIZUMAB. [Suspect]
     Active Substance: TOCILIZUMAB
     Route: 058
     Dates: start: 20140203, end: 20150504
  3. METHOTREXATE. [Concomitant]
     Active Substance: METHOTREXATE
     Indication: PRODUCT USED FOR UNKNOWN INDICATION
  4. RAMIPRIL. [Suspect]
     Active Substance: RAMIPRIL
     Indication: PRODUCT USED FOR UNKNOWN INDICATION
     Route: 048
  5. TOCILIZUMAB. [Suspect]
     Active Substance: TOCILIZUMAB
     Indication: RHEUMATOID ARTHRITIS
     Dosage: 162 MG, UNK
     Route: 058
     Dates: start: 20150608, end: 20151225
  6. TOCILIZUMAB. [Suspect]
     Active Substance: TOCILIZUMAB
     Dosage: 162 MG, UNK
     Route: 058
     Dates: start: 20160226

REACTIONS (12)
  - Ill-defined disorder [Not Recovered/Not Resolved]
  - Flatulence [Not Recovered/Not Resolved]
  - Asthenia [Not Recovered/Not Resolved]
  - Thyroid function test abnormal [Not Recovered/Not Resolved]
  - Nasopharyngitis [Not Recovered/Not Resolved]
  - Frequent bowel movements [Not Recovered/Not Resolved]
  - Myocardial infarction [Recovered/Resolved]
  - Gastrointestinal inflammation [Not Recovered/Not Resolved]
  - Drug intolerance [Unknown]
  - Atrial fibrillation [Recovered/Resolved]
  - Influenza [Unknown]
  - Gastrointestinal pain [Unknown]

NARRATIVE: CASE EVENT DATE: 20140203
